FAERS Safety Report 24019736 (Version 2)
Quarter: 2024Q4

REPORT INFORMATION
  Report Type: Spontaneous
  Country: US (occurrence: US)
  Receive Date: 20240627
  Receipt Date: 20241024
  Transmission Date: 20250114
  Serious: Yes (Hospitalization, Other)
  Sender: LABORATOIRES SERB
  Company Number: US-SERB S.A.S.-2158616

PATIENT
  Age: 74 Year
  Sex: Male

DRUGS (4)
  1. VORAXAZE [Suspect]
     Active Substance: GLUCARPIDASE
     Indication: Toxicity to various agents
  2. LEUCOVORIN [Suspect]
     Active Substance: LEUCOVORIN\LEUCOVORIN CALCIUM
  3. RITUXIMAB [Suspect]
     Active Substance: RITUXIMAB
  4. METHOTREXATE [Suspect]
     Active Substance: METHOTREXATE

REACTIONS (11)
  - Psychotic disorder [Recovering/Resolving]
  - Radiotherapy [Recovering/Resolving]
  - Drug ineffective [Recovering/Resolving]
  - Walking aid user [Recovering/Resolving]
  - Aggression [Recovering/Resolving]
  - Agitation [Recovering/Resolving]
  - Confusional state [Recovering/Resolving]
  - Gait disturbance [Recovering/Resolving]
  - Frontotemporal dementia [Recovering/Resolving]
  - Dementia [Recovering/Resolving]
  - Hospitalisation [Recovering/Resolving]

NARRATIVE: CASE EVENT DATE: 20240329
